FAERS Safety Report 17631203 (Version 1)
Quarter: 2020Q2

REPORT INFORMATION
  Report Type: Report from Study
  Country: CA (occurrence: CA)
  Receive Date: 20200406
  Receipt Date: 20200406
  Transmission Date: 20200713
  Serious: Yes (Other)
  Sender: FDA-Public Use
  Company Number: CA-JNJFOC-20200341180

PATIENT

DRUGS (1)
  1. REMICADE [Suspect]
     Active Substance: INFLIXIMAB
     Indication: CROHN^S DISEASE
     Route: 064
     Dates: start: 2019

REACTIONS (3)
  - Foetal malformation [Unknown]
  - Foetal exposure during pregnancy [Unknown]
  - Foetal chromosome abnormality [Unknown]

NARRATIVE: CASE EVENT DATE: 20200323
